FAERS Safety Report 6500302-9 (Version None)
Quarter: 2009Q4

REPORT INFORMATION
  Report Type: 
  Country: None (occurrence: None)
  Receive Date: 20091216
  Receipt Date: 20091208
  Transmission Date: 20100525
  Serious: Yes (Other)
  Sender: FDA-Public Use
  Company Number: US-ROCHE-673565

PATIENT
  Sex: Female
  Weight: 56.7 kg

DRUGS (2)
  1. BONIVA [Suspect]
     Indication: OSTEOPENIA
     Dosage: TAKEN FOR 1 YEAR
     Route: 048
     Dates: start: 20080101, end: 20090101
  2. BONIVA [Suspect]
     Route: 048
     Dates: start: 20091108

REACTIONS (2)
  - JOINT CREPITATION [None]
  - PAIN IN JAW [None]
